FAERS Safety Report 17000408 (Version 1)
Quarter: 2019Q4

REPORT INFORMATION
  Report Type: Report from Study
  Country: US (occurrence: US)
  Receive Date: 20191106
  Receipt Date: 20191106
  Transmission Date: 20200122
  Serious: Yes (Other)
  Sender: FDA-Public Use
  Company Number: US-BRISTOL-MYERS SQUIBB COMPANY-BMS-2019-089156

PATIENT
  Age: 65 Year
  Sex: Female
  Weight: 91.3 kg

DRUGS (4)
  1. BLINDED PLACEBO [Suspect]
     Active Substance: INVESTIGATIONAL PRODUCT
     Indication: NON-ALCOHOLIC STEATOHEPATITIS
     Route: 065
  2. BLINDED PEGBELFERMIN [Suspect]
     Active Substance: PEGBELFERMIN
     Indication: HEPATIC CIRRHOSIS
     Route: 065
  3. BLINDED PLACEBO [Suspect]
     Active Substance: INVESTIGATIONAL PRODUCT
     Indication: HEPATIC CIRRHOSIS
     Route: 065
  4. BLINDED PEGBELFERMIN [Suspect]
     Active Substance: PEGBELFERMIN
     Indication: NON-ALCOHOLIC STEATOHEPATITIS
     Route: 065

REACTIONS (1)
  - Device malfunction [Unknown]

NARRATIVE: CASE EVENT DATE: 20190823
